FAERS Safety Report 16243336 (Version 1)
Quarter: 2019Q2

REPORT INFORMATION
  Report Type: Spontaneous
  Country: US (occurrence: US)
  Receive Date: 20190426
  Receipt Date: 20190426
  Transmission Date: 20190711
  Serious: Yes (Hospitalization)
  Sender: FDA-Public Use
  Company Number: US-PFIZER INC-2019172807

PATIENT
  Age: 88 Year
  Sex: Female
  Weight: 52.16 kg

DRUGS (1)
  1. IBRANCE [Suspect]
     Active Substance: PALBOCICLIB
     Indication: BREAST CANCER
     Dosage: UNK, CYCLIC (DOSE UNKNOWN ONCE A DAY BY MOUTH FOR 21 DAYS THEN 7 DAYS OFF.)
     Route: 048
     Dates: start: 2015

REACTIONS (3)
  - Gait inability [Unknown]
  - Fall [Recovering/Resolving]
  - Gait disturbance [Not Recovered/Not Resolved]

NARRATIVE: CASE EVENT DATE: 201904
